FAERS Safety Report 9002720 (Version 1)
Quarter: 2013Q1

REPORT INFORMATION
  Report Type: Spontaneous
  Country: US (occurrence: US)
  Receive Date: 20130107
  Receipt Date: 20130107
  Transmission Date: 20140127
  Serious: Yes (Hospitalization)
  Sender: FDA-Public Use
  Company Number: US-GLAXOSMITHKLINE-A0994253A

PATIENT
  Age: 57 Year
  Sex: Female
  Weight: 74.46 kg

DRUGS (11)
  1. BENLYSTA [Suspect]
     Indication: SYSTEMIC LUPUS ERYTHEMATOSUS
     Route: 042
     Dates: start: 20111101
  2. TRICOR [Concomitant]
  3. ATENOLOL [Concomitant]
  4. GLIPIZIDE [Concomitant]
  5. JANUVIA [Concomitant]
  6. LANTUS [Concomitant]
  7. NOVOLOG [Concomitant]
  8. PLAQUENIL [Concomitant]
  9. VITAMIN D [Concomitant]
  10. SINGULAIR [Concomitant]
  11. FOLIC ACID [Concomitant]

REACTIONS (3)
  - Hypoglycaemia [Recovered/Resolved]
  - Loss of consciousness [Recovered/Resolved]
  - Asthenia [Recovered/Resolved]
